FAERS Safety Report 6983115-3 (Version None)
Quarter: 2010Q3

REPORT INFORMATION
  Report Type: 
  Country: None (occurrence: None)
  Receive Date: 20100914
  Receipt Date: 20100618
  Transmission Date: 20110219
  Serious: No
  Sender: FDA-Public Use
  Company Number: US-PFIZER INC-2010077549

PATIENT
  Sex: Female
  Weight: 81.633 kg

DRUGS (4)
  1. LYRICA [Suspect]
     Indication: PAIN IN EXTREMITY
     Dosage: 75 MG, 2X/DAY
     Dates: start: 20100101, end: 20100617
  2. IBUPROFEN [Suspect]
     Indication: PAIN IN EXTREMITY
     Dosage: 800 MG, 2X/DAY
     Dates: end: 20100601
  3. SEROQUEL [Concomitant]
     Indication: BIPOLAR DISORDER
     Dosage: UNK
  4. FLEXERIL [Concomitant]
     Dosage: UNK

REACTIONS (1)
  - FALSE POSITIVE INVESTIGATION RESULT [None]
